FAERS Safety Report 20833304 (Version 1)
Quarter: 2022Q2

REPORT INFORMATION
  Report Type: Spontaneous
  Country: US (occurrence: None)
  Receive Date: 20220513
  Receipt Date: 20220513
  Transmission Date: 20220721
  Serious: Yes (Hospitalization)
  Sender: FDA-Public Use
  Company Number: None

PATIENT
  Age: 72 Year
  Sex: Female
  Weight: 58.5 kg

DRUGS (6)
  1. RECLAST [Suspect]
     Active Substance: ZOLEDRONIC ACID
     Indication: Osteoporosis
     Dosage: OTHER FREQUENCY : ONCE A YEAR;?
     Route: 042
  2. PREDNISOLONE [Concomitant]
     Active Substance: PREDNISOLONE
  3. ophthalmic solution [Concomitant]
  4. CALCIUM [Concomitant]
     Active Substance: CALCIUM
  5. MAGNESIUM [Concomitant]
     Active Substance: MAGNESIUM
  6. ASPIRIN [Concomitant]
     Active Substance: ASPIRIN

REACTIONS (21)
  - Middle insomnia [None]
  - Chest discomfort [None]
  - Pain in jaw [None]
  - Pain [None]
  - Back pain [None]
  - Movement disorder [None]
  - Diarrhoea [None]
  - Gait disturbance [None]
  - Anal incontinence [None]
  - Pain in extremity [None]
  - Fatigue [None]
  - Refusal of treatment by patient [None]
  - Pain in extremity [None]
  - Arthralgia [None]
  - Pain in extremity [None]
  - Headache [None]
  - Headache [None]
  - Myalgia [None]
  - Drug ineffective [None]
  - Musculoskeletal stiffness [None]
  - Dyspnoea [None]

NARRATIVE: CASE EVENT DATE: 20220507
